FAERS Safety Report 10416311 (Version 1)
Quarter: 2014Q2

REPORT INFORMATION
  Report Type: Spontaneous
  Country: US (occurrence: None)
  Receive Date: 20140604
  Receipt Date: 20140604
  Transmission Date: 20141212
  Serious: Yes (Hospitalization)
  Sender: FDA-Public Use
  Company Number: 163-POMAL-14034593

PATIENT
  Age: 71 Year
  Sex: Female
  Weight: 71.22 kg

DRUGS (8)
  1. POMALYST (POMALIDOMIDE) (4 MILLIGRAM, CAPSULES) [Suspect]
     Indication: PLASMA CELL MYELOMA
     Route: 048
     Dates: start: 20140220
  2. ACYCLOVIR (ACICLOVIR) (ACICLOVIR) [Concomitant]
  3. BIOTIN [Concomitant]
  4. CALCIUM + D [Concomitant]
  5. DECADRON (DEXAMETHASONE) [Concomitant]
  6. HCTZ (HYDROCHLOROTHIAZIDE) [Concomitant]
  7. NEUPOGEN (FILGRASTIM) [Concomitant]
  8. VITAMIN D (ERGOCALCIFEROL) [Concomitant]

REACTIONS (2)
  - Pneumonia [None]
  - Platelet count decreased [None]
